FAERS Safety Report 7496410-9 (Version None)
Quarter: 2011Q2

REPORT INFORMATION
  Report Type: 
  Country: None (occurrence: None)
  Receive Date: 20110523
  Receipt Date: 20110516
  Transmission Date: 20111010
  Serious: Yes (Other)
  Sender: FDA-Public Use
  Company Number: PHHY2011GB31099

PATIENT
  Age: 64 Year
  Sex: Male

DRUGS (6)
  1. LEVOTHYROXINE SODIUM [Concomitant]
  2. AMITRIPTYLINE HCL [Concomitant]
  3. DIAZEPAM [Concomitant]
  4. VENLAFAXINE [Concomitant]
  5. CITALOPRAM HYDROBROMIDE [Suspect]
     Dosage: UNK
     Dates: end: 20110321
  6. CITALOPRAM HYDROBROMIDE [Concomitant]
     Dosage: UNK UKN, UNK
     Dates: end: 20110321

REACTIONS (1)
  - MYOPATHY [None]
